FAERS Safety Report 5209903-1 (Version None)
Quarter: 2006Q4

REPORT INFORMATION
  Report Type: 
  Country: None (occurrence: None)
  Receive Date: 20061130
  Receipt Date: 20060203
  Transmission Date: 20070319
  Serious: Yes (Other)
  Sender: FDA-Public Use
  Company Number: 2006017345

PATIENT
  Age: 78 Year
  Sex: Male
  Weight: 68.0396 kg

DRUGS (3)
  1. ZYVOX [Suspect]
     Indication: PNEUMONIA STAPHYLOCOCCAL
     Dosage: 400 MG (200 MG, 2 IN 1 D)
     Dates: start: 20060101
  2. ALL OTHER THERAPEUTIC PRODUCTS (ALL OTHER THERAPEUTIC PRODUCTS) [Concomitant]
  3. VANCOMYCIN [Concomitant]

REACTIONS (1)
  - PLATELET COUNT DECREASED [None]
